FAERS Safety Report 16638267 (Version 2)
Quarter: 2019Q3

REPORT INFORMATION
  Report Type: Spontaneous
  Country: US (occurrence: US)
  Receive Date: 20190726
  Receipt Date: 20190910
  Transmission Date: 20191004
  Serious: Yes (Other)
  Sender: FDA-Public Use
  Company Number: US-BAUSCH-BL-2019-020971

PATIENT
  Age: 84 Year
  Sex: Female

DRUGS (1)
  1. DORZOLAMIDE HYDROCHLORIDE AND TIMOLOL MALEATE OPHTHALMIC SOLN 2%/0.5% [Suspect]
     Active Substance: DORZOLAMIDE HYDROCHLORIDE\TIMOLOL MALEATE
     Indication: GLAUCOMA
     Dosage: SECOND BOTTLE, 1 DROP IN THE LEFT EYE, STRENGTH: 2 PERCENT/0.5 PERCENT
     Route: 047
     Dates: start: 201901

REACTIONS (6)
  - Ill-defined disorder [Unknown]
  - Adverse event [Not Recovered/Not Resolved]
  - Symptom recurrence [Not Recovered/Not Resolved]
  - Incorrect product administration duration [Unknown]
  - Intraocular pressure increased [Not Recovered/Not Resolved]
  - Product deposit [Unknown]

NARRATIVE: CASE EVENT DATE: 2019
